FAERS Safety Report 12679791 (Version 2)
Quarter: 2016Q3

REPORT INFORMATION
  Report Type: Report from Study
  Country: AE (occurrence: AE)
  Receive Date: 20160824
  Receipt Date: 20160915
  Transmission Date: 20161109
  Serious: Yes (Disabling, Other)
  Sender: FDA-Public Use
  Company Number: PHHY2015AE103428

PATIENT
  Age: 29 Year
  Sex: Female
  Weight: 96 kg

DRUGS (1)
  1. GILENYA [Suspect]
     Active Substance: FINGOLIMOD HYDROCHLORIDE
     Indication: MULTIPLE SCLEROSIS
     Dosage: 0.5 MG, UNK
     Route: 048
     Dates: start: 20141201

REACTIONS (6)
  - Eye pain [Unknown]
  - Hypoaesthesia [Recovering/Resolving]
  - Visual field defect [Unknown]
  - Visual acuity reduced [Unknown]
  - Vision blurred [Not Recovered/Not Resolved]
  - Dyschromatopsia [Unknown]

NARRATIVE: CASE EVENT DATE: 20150701
